FAERS Safety Report 19132015 (Version 4)
Quarter: 2022Q1

REPORT INFORMATION
  Report Type: Spontaneous
  Country: GB (occurrence: GB)
  Receive Date: 20210413
  Receipt Date: 20220302
  Transmission Date: 20220423
  Serious: Yes (Other)
  Sender: FDA-Public Use
  Company Number: GB-EMA-DD-20200611-GANGAL_S-214456

PATIENT
  Sex: Female

DRUGS (14)
  1. OLANZAPINE [Suspect]
     Active Substance: OLANZAPINE
     Indication: Schizoaffective disorder
     Dosage: UNK UNK (EVERY)
     Route: 065
  2. OLANZAPINE [Suspect]
     Active Substance: OLANZAPINE
     Dosage: 5 MILLIGRAM , THERAPY START DATE AND END DATE : ASKU
     Route: 065
  3. OLANZAPINE [Suspect]
     Active Substance: OLANZAPINE
     Dosage: THERAPY START DATE AND END DATE : ASKU? , UNK
     Route: 065
  4. ZUCLOPENTHIXOL [Suspect]
     Active Substance: ZUCLOPENTHIXOL
     Indication: Schizoaffective disorder
     Dosage: UNK, UNK (EVERY) , THERAPY START DATE AND END DATE : ASKU
     Route: 065
  5. ZUCLOPENTHIXOL [Suspect]
     Active Substance: ZUCLOPENTHIXOL
     Dosage: UNK , THERAPY START DATE AND END DATE : ASKU
     Route: 065
  6. ZUCLOPENTHIXOL [Suspect]
     Active Substance: ZUCLOPENTHIXOL
     Dosage: UNK , THERAPY START DATE AND END DATE : ASKU
     Route: 065
  7. ZUCLOPENTHIXOL [Suspect]
     Active Substance: ZUCLOPENTHIXOL
     Dosage: UNK , THERAPY START DATE AND END DATE : ASKU
     Route: 065
  8. ZUCLOPENTHIXOL [Suspect]
     Active Substance: ZUCLOPENTHIXOL
     Dosage: UNK , THERAPY START DATE AND END DATE : ASKU
     Route: 065
  9. ZUCLOPENTHIXOL [Suspect]
     Active Substance: ZUCLOPENTHIXOL
     Dosage: UNK , THERAPY START DATE AND END DATE : ASKU
     Route: 065
  10. ARIPIPRAZOLE [Suspect]
     Active Substance: ARIPIPRAZOLE
     Indication: Schizoaffective disorder depressive type
     Dosage: MYLAN ARIPIPRAZOLE , THERAPY START DATE AND END DATE : ASKU , UNK
     Route: 065
  11. ARIPIPRAZOLE [Suspect]
     Active Substance: ARIPIPRAZOLE
     Dosage: THERAPY START DATE AND END DATE : ASKU , UNK
     Route: 065
  12. ARIPIPRAZOLE [Suspect]
     Active Substance: ARIPIPRAZOLE
     Dosage: THERAPY START DATE AND END DATE : ASKU , UNK (EVERY)
     Route: 065
  13. ARIPIPRAZOLE [Suspect]
     Active Substance: ARIPIPRAZOLE
     Dosage: THERAPY START DATE AND END DATE : ASKU , UNK
     Route: 065
  14. ARIPIPRAZOLE [Suspect]
     Active Substance: ARIPIPRAZOLE
     Dosage: THERAPY START DATE AND END DATE : ASKU , UNK
     Route: 065

REACTIONS (9)
  - Mean cell haemoglobin decreased [Unknown]
  - Mean cell haemoglobin concentration decreased [Unknown]
  - Product use in unapproved indication [Unknown]
  - Monocyte count increased [Unknown]
  - Drug resistance [Not Recovered/Not Resolved]
  - Monocyte count increased [Unknown]
  - Mean cell haemoglobin decreased [Unknown]
  - Psychotic symptom [Unknown]
  - Schizoaffective disorder [Unknown]

NARRATIVE: CASE EVENT DATE: 20200507
